FAERS Safety Report 4776597-9 (Version None)
Quarter: 2005Q3

REPORT INFORMATION
  Report Type: 
  Country: None (occurrence: None)
  Receive Date: 20050915
  Receipt Date: 20050907
  Transmission Date: 20060218
  Serious: Yes (Other)
  Sender: FDA-Public Use
  Company Number: 2005121601

PATIENT
  Age: 66 Year
  Sex: Male
  Weight: 90 kg

DRUGS (5)
  1. AMLODIPINE [Suspect]
     Indication: HYPERTENSION
     Dosage: 5 MG (5 MG, DAILY), ORAL
     Route: 048
     Dates: start: 20040209
  2. SPIRONOLACTONE [Concomitant]
  3. PRAVASTATIN [Concomitant]
  4. ATACAND [Concomitant]
  5. ACETYLSALICYLATE LYSINE (ACETYLSALICYLATE LYSINE) [Concomitant]

REACTIONS (3)
  - ANOSMIA [None]
  - NASAL POLYPS [None]
  - TOTAL LUNG CAPACITY DECREASED [None]
